FAERS Safety Report 5752713-7 (Version None)
Quarter: 2008Q2

REPORT INFORMATION
  Report Type: 
  Country: None (occurrence: None)
  Receive Date: 20080529
  Receipt Date: 20080519
  Transmission Date: 20081010
  Serious: Yes (Hospitalization, Other)
  Sender: FDA-Public Use
  Company Number: US-PFIZER INC-2008043603

PATIENT
  Sex: Female

DRUGS (1)
  1. CYTOTEC [Suspect]
     Route: 064
     Dates: start: 20080225, end: 20080225

REACTIONS (6)
  - APGAR SCORE LOW [None]
  - DRUG EXPOSURE DURING PREGNANCY [None]
  - HYPOTENSION [None]
  - MATERNAL DRUGS AFFECTING FOETUS [None]
  - PYREXIA [None]
  - UMBILICAL CORD AROUND NECK [None]
